FAERS Safety Report 13206084 (Version 1)
Quarter: 2017Q1

REPORT INFORMATION
  Report Type: Spontaneous
  Country: US (occurrence: US)
  Receive Date: 20170208
  Receipt Date: 20170208
  Transmission Date: 20170428
  Serious: Yes (Other)
  Sender: FDA-Public Use
  Company Number: None

PATIENT
  Age: 64 Year
  Sex: Male
  Weight: 51.75 kg

DRUGS (1)
  1. TIMOLOL GFS [Suspect]
     Active Substance: TIMOLOL MALEATE
     Indication: GLAUCOMA
     Dosage: DOSE OR AMOUNT 1 GTT DROP(S)
     Route: 047
     Dates: start: 20170205, end: 20170206

REACTIONS (4)
  - Eye irritation [None]
  - Intraocular pressure test abnormal [None]
  - Ocular discomfort [None]
  - Product quality issue [None]

NARRATIVE: CASE EVENT DATE: 20170207
